FAERS Safety Report 6386138-0 (Version None)
Quarter: 2009Q4

REPORT INFORMATION
  Report Type: 
  Country: None (occurrence: None)
  Receive Date: 20091002
  Receipt Date: 20081215
  Transmission Date: 20100525
  Serious: Yes (Other)
  Sender: FDA-Public Use
  Company Number: US-ASTRAZENECA-2008UW28004

PATIENT
  Age: 84 Year
  Sex: Female
  Weight: 72.6 kg

DRUGS (6)
  1. ARIMIDEX [Suspect]
     Indication: BREAST CANCER
     Route: 048
     Dates: start: 20071101
  2. BLOOD PRESSURE MEDICATION [Concomitant]
  3. CHOLESTEROL MEDICATION [Concomitant]
  4. WATER PILL [Concomitant]
  5. CELEXA [Concomitant]
  6. COUMADIN [Concomitant]

REACTIONS (1)
  - PULMONARY THROMBOSIS [None]
